FAERS Safety Report 5401833-5 (Version None)
Quarter: 2007Q3

REPORT INFORMATION
  Report Type: 
  Country: None (occurrence: None)
  Receive Date: 20070726
  Receipt Date: 20070717
  Transmission Date: 20080115
  Serious: Yes (Hospitalization, Other)
  Sender: FDA-Public Use
  Company Number: 200505IM000189

PATIENT
  Age: 77 Year
  Sex: Male
  Weight: 76 kg

DRUGS (5)
  1. INTERFERON GAMMA-1B [Suspect]
     Indication: IDIOPATHIC PULMONARY FIBROSIS
     Dosage: 200 UG; TIW; SUBCUTANEOUS
     Route: 058
     Dates: start: 20041217, end: 20050513
  2. NAPROXEN [Concomitant]
  3. OMEPRAZOLE [Concomitant]
  4. QUININE/THIAMINE [Concomitant]
  5. FUROSEMIDE [Concomitant]

REACTIONS (20)
  - ABSCESS INTESTINAL [None]
  - ARRHYTHMIA [None]
  - ATRIAL FIBRILLATION [None]
  - CANDIDIASIS [None]
  - CENTRAL LINE INFECTION [None]
  - DIABETES MELLITUS [None]
  - DIVERTICULUM [None]
  - HYPOALBUMINAEMIA [None]
  - KLEBSIELLA INFECTION [None]
  - LIVEDO RETICULARIS [None]
  - MULTIPLE-DRUG RESISTANCE [None]
  - PERITONEAL ABSCESS [None]
  - PNEUMONIA STAPHYLOCOCCAL [None]
  - PNEUMOPERITONEUM [None]
  - POST PROCEDURAL COMPLICATION [None]
  - RESPIRATORY FAILURE [None]
  - SEPSIS [None]
  - SIGMOIDITIS [None]
  - STREPTOCOCCAL INFECTION [None]
  - SUBCUTANEOUS ABSCESS [None]
